FAERS Safety Report 9597080 (Version 2)
Quarter: 2013Q4

REPORT INFORMATION
  Report Type: Spontaneous
  Country: CA (occurrence: CA)
  Receive Date: 20131004
  Receipt Date: 20131022
  Transmission Date: 20140711
  Serious: Yes (Disabling)
  Sender: FDA-Public Use
  Company Number: CA-009507513-1310CAN001314

PATIENT
  Age: 63 Year
  Sex: Female

DRUGS (2)
  1. VICTRELIS TRIPLE [Suspect]
     Indication: HEPATITIS C
     Dosage: 100 MICROGRAM, UNK
     Route: 058
     Dates: start: 201308
  2. VICTRELIS TRIPLE [Suspect]
     Dosage: 2400 MG, UNK
     Route: 048
     Dates: start: 201308

REACTIONS (5)
  - Physical disability [Unknown]
  - Haemoglobin decreased [Unknown]
  - Nervousness [Unknown]
  - Anger [Unknown]
  - Confusional state [Unknown]
